FAERS Safety Report 12566355 (Version 2)
Quarter: 2016Q3

REPORT INFORMATION
  Report Type: Spontaneous
  Country: FR (occurrence: FR)
  Receive Date: 20160718
  Receipt Date: 20160729
  Transmission Date: 20161109
  Serious: Yes (Life-Threatening)
  Sender: FDA-Public Use
  Company Number: FR-SA-2016SA129256

PATIENT
  Age: 56 Year
  Sex: Male

DRUGS (4)
  1. DAUNORUBICIN [Concomitant]
     Active Substance: DAUNORUBICIN
     Dates: start: 20160201
  2. THYMOGLOBULINE [Suspect]
     Active Substance: LAPINE T-LYMPHOCYTE IMMUNE GLOBULIN
     Indication: APLASIA
     Route: 042
     Dates: start: 20160619, end: 20160619
  3. ARACYTINE [Concomitant]
     Active Substance: CYTARABINE
     Dates: start: 20160321
  4. ARACYTINE [Concomitant]
     Active Substance: CYTARABINE
     Dates: start: 20160201

REACTIONS (4)
  - Disseminated intravascular coagulation [Not Recovered/Not Resolved]
  - Acute kidney injury [Not Recovered/Not Resolved]
  - Anaphylactic reaction [Not Recovered/Not Resolved]
  - Hepatocellular injury [Not Recovered/Not Resolved]

NARRATIVE: CASE EVENT DATE: 20160619
